FAERS Safety Report 25465857 (Version 4)
Quarter: 2025Q3

REPORT INFORMATION
  Report Type: Spontaneous
  Country: JP (occurrence: JP)
  Receive Date: 20250623
  Receipt Date: 20250923
  Transmission Date: 20251020
  Serious: Yes (Hospitalization)
  Sender: NOVO NORDISK
  Company Number: JP-NOVOPROD-1454487

PATIENT
  Age: 74 Year
  Sex: Female
  Weight: 47 kg

DRUGS (7)
  1. INSULIN ICODEC [Suspect]
     Active Substance: INSULIN ICODEC
     Indication: Type 1 diabetes mellitus
     Dosage: 30 IU, QW
     Route: 058
     Dates: start: 20250417, end: 20250417
  2. INSULIN ICODEC [Suspect]
     Active Substance: INSULIN ICODEC
     Dosage: 60 IU, QW
     Route: 058
     Dates: start: 20250501
  3. FIASP [Suspect]
     Active Substance: INSULIN ASPART
     Indication: Type 1 diabetes mellitus
     Dosage: 19 IU, QD (10-5-4)
     Route: 058
     Dates: start: 20250417, end: 20250424
  4. ROSUVASTATIN [Concomitant]
     Active Substance: ROSUVASTATIN
     Indication: Product used for unknown indication
  5. ASPIRIN [Concomitant]
     Active Substance: ASPIRIN
     Indication: Product used for unknown indication
  6. REBAMIPIDE [Concomitant]
     Active Substance: REBAMIPIDE
     Indication: Product used for unknown indication
  7. CLOPIDOGREL [Concomitant]
     Active Substance: CLOPIDOGREL BISULFATE
     Indication: Product used for unknown indication

REACTIONS (4)
  - Ketoacidosis [Recovered/Resolved]
  - Blood glucose increased [Unknown]
  - Product dose omission issue [Unknown]
  - Product prescribing error [Unknown]

NARRATIVE: CASE EVENT DATE: 20250401
